FAERS Safety Report 5943034-8 (Version None)
Quarter: 2008Q4

REPORT INFORMATION
  Report Type: 
  Country: None (occurrence: None)
  Receive Date: 20081106
  Receipt Date: 20081022
  Transmission Date: 20090506
  Serious: Yes (Other)
  Sender: FDA-Public Use
  Company Number: CH-ELI_LILLY_AND_COMPANY-CH200810000021

PATIENT
  Age: 33 Year
  Sex: Female
  Weight: 88 kg

DRUGS (2)
  1. BYETTA [Suspect]
     Indication: DIABETES MELLITUS
     Dosage: 10 UG, 2/D
     Route: 058
     Dates: start: 20070901, end: 20080101
  2. BYETTA [Suspect]
     Dosage: 10 UG, 3 TO 4 TIMES A DAY
     Route: 058
     Dates: start: 20080701

REACTIONS (3)
  - GLYCOSYLATED HAEMOGLOBIN INCREASED [None]
  - INTENTIONAL OVERDOSE [None]
  - RETINOPATHY [None]
